FAERS Safety Report 6043676-8 (Version None)
Quarter: 2009Q1

REPORT INFORMATION
  Report Type: 
  Country: None (occurrence: None)
  Receive Date: 20090115
  Receipt Date: 20081230
  Transmission Date: 20090719
  Serious: Yes (Other)
  Sender: FDA-Public Use
  Company Number: 8040957

PATIENT
  Age: 49 Year
  Sex: Female

DRUGS (2)
  1. PREDNISOLONE [Suspect]
     Dosage: D/ PO
     Route: 048
  2. CYCLOPHOSPHAMIDE [Suspect]
     Dosage: 500 MG, M; IVI

REACTIONS (4)
  - CENTRAL PONTINE MYELINOLYSIS [None]
  - COMA [None]
  - GRAND MAL CONVULSION [None]
  - INAPPROPRIATE ANTIDIURETIC HORMONE SECRETION [None]
